FAERS Safety Report 4835918-9 (Version None)
Quarter: 2005Q4

REPORT INFORMATION
  Report Type: 
  Country: None (occurrence: None)
  Receive Date: 20051118
  Receipt Date: 20051107
  Transmission Date: 20060501
  Serious: Yes (Other)
  Sender: FDA-Public Use
  Company Number: 219293

PATIENT
  Age: 2 Year
  Sex: Male

DRUGS (1)
  1. NUTROPIN AQ [Suspect]
     Indication: GROWTH HORMONE DEFICIENCY
     Dates: start: 20050201

REACTIONS (4)
  - CONVULSION [None]
  - EYE PAIN [None]
  - HEADACHE [None]
  - PHOTOSENSITIVITY REACTION [None]
